FAERS Safety Report 20938374 (Version 1)
Quarter: 2022Q2

REPORT INFORMATION
  Report Type: Report from Study
  Country: US (occurrence: US)
  Receive Date: 20220609
  Receipt Date: 20220609
  Transmission Date: 20220720
  Serious: Yes (Other)
  Sender: FDA-Public Use
  Company Number: US-CELGENE-USA-20210704549

PATIENT
  Age: 34 Year
  Sex: Female

DRUGS (7)
  1. ZEPOSIA [Suspect]
     Active Substance: OZANIMOD HYDROCHLORIDE
     Indication: Multiple sclerosis
     Dosage: .92 MILLIGRAM
     Route: 048
     Dates: start: 20210622
  2. IRON [Concomitant]
     Active Substance: IRON
     Indication: Muscle disorder
     Route: 065
  3. HERBALS [Concomitant]
     Active Substance: HERBALS
     Indication: Muscle disorder
     Route: 065
  4. VIT D [VITAMIN D NOS] [Concomitant]
     Indication: Muscle disorder
     Route: 065
  5. ECHINACEA [Concomitant]
     Active Substance: ECHINACEA, UNSPECIFIED
     Indication: Muscle disorder
     Route: 065
  6. FLAXSEED [Concomitant]
     Active Substance: FLAX SEED
     Indication: Muscle disorder
     Route: 065
  7. LION^S MANE [Concomitant]
     Indication: Muscle disorder
     Route: 065

REACTIONS (1)
  - Blindness [Unknown]

NARRATIVE: CASE EVENT DATE: 20210101
